FAERS Safety Report 6261911-8 (Version None)
Quarter: 2009Q3

REPORT INFORMATION
  Report Type: 
  Country: None (occurrence: None)
  Receive Date: 20090709
  Receipt Date: 20090703
  Transmission Date: 20100115
  Serious: Yes (Death, Hospitalization, Other)
  Sender: FDA-Public Use
  Company Number: B0578074A

PATIENT
  Sex: Male
  Weight: 60 kg

DRUGS (3)
  1. LAPATINIB [Suspect]
     Indication: GASTRIC CANCER
     Dosage: 1250MG PER DAY
     Route: 048
     Dates: start: 20090527
  2. OXALIPLATINE [Suspect]
     Indication: GASTRIC CANCER
     Dosage: 220MG CYCLIC
     Route: 042
     Dates: start: 20090527
  3. CAPECITABINE [Suspect]
     Indication: GASTRIC CANCER
     Dosage: 2800MG PER DAY
     Route: 048
     Dates: start: 20090527

REACTIONS (14)
  - ATRIAL FIBRILLATION [None]
  - DEEP VEIN THROMBOSIS [None]
  - DIARRHOEA [None]
  - EJECTION FRACTION DECREASED [None]
  - FATIGUE [None]
  - HICCUPS [None]
  - OEDEMA PERIPHERAL [None]
  - PNEUMONIA [None]
  - PRODUCTIVE COUGH [None]
  - PULMONARY EMBOLISM [None]
  - PULMONARY INFARCTION [None]
  - PYREXIA [None]
  - VENOUS THROMBOSIS [None]
  - VOMITING [None]
